FAERS Safety Report 16414997 (Version 1)
Quarter: 2019Q2

REPORT INFORMATION
  Report Type: Spontaneous
  Country: US (occurrence: US)
  Receive Date: 20190611
  Receipt Date: 20190611
  Transmission Date: 20190711
  Serious: No
  Sender: FDA-Public Use
  Company Number: US-SEPTODONT-201804836

PATIENT
  Age: 60 Year
  Sex: Male

DRUGS (1)
  1. SEPTOCAINE [Suspect]
     Active Substance: ARTICAINE HYDROCHLORIDE\EPINEPHRINE BITARTRATE
     Indication: DENTAL LOCAL ANAESTHESIA
     Dosage: THE DR. STATED HE USED ABOUT 1/2 TO 1 WHOLE CARPULE ON THE PATIENTS.
     Route: 004

REACTIONS (2)
  - Injection site pallor [Recovered/Resolved]
  - Drug ineffective [Unknown]
